FAERS Safety Report 25811989 (Version 1)
Quarter: 2025Q3

REPORT INFORMATION
  Report Type: Spontaneous
  Country: US (occurrence: US)
  Receive Date: 20250917
  Receipt Date: 20250917
  Transmission Date: 20251020
  Serious: No
  Sender: PFIZER
  Company Number: US-PFIZER INC-PV202500111627

PATIENT
  Age: 54 Year
  Sex: Female

DRUGS (2)
  1. NURTEC ODT [Suspect]
     Active Substance: RIMEGEPANT SULFATE
     Indication: Migraine prophylaxis
     Route: 060
  2. RIZATRIPTAN [Suspect]
     Active Substance: RIZATRIPTAN

REACTIONS (3)
  - Heart rate increased [Unknown]
  - Migraine [Unknown]
  - Drug ineffective [Unknown]
